FAERS Safety Report 7692129 (Version 4)
Quarter: 2014Q1

REPORT INFORMATION
  Report Type: Spontaneous
  Country: US (occurrence: US)
  Receive Date: 20101204
  Receipt Date: 20140128
  Transmission Date: 20141002
  Serious: Yes (Other)
  Sender: FDA-Public Use
  Company Number: US-BAYER-2010-000685

PATIENT
  Age: 21 Year
  Sex: Female
  Weight: 79.36 kg

DRUGS (6)
  1. YASMIN [Suspect]
     Indication: PRODUCT USED FOR UNKNOWN INDICATION
  2. YAZ [Suspect]
     Indication: ACNE
     Dosage: UNK
     Dates: start: 200501, end: 201001
  3. YAZ [Suspect]
     Indication: PREMENSTRUAL SYNDROME
  4. TRIVORA-28 [Concomitant]
     Dosage: UNK
     Dates: start: 20070712, end: 20070727
  5. ESTROSTEP FE [Concomitant]
     Dosage: UNK
     Dates: start: 20061016, end: 20061215
  6. ESTROSTEP FE [Concomitant]
     Dosage: UNK
     Dates: start: 20070307, end: 20070531

REACTIONS (4)
  - Cholelithiasis [None]
  - Injury [None]
  - Cholecystitis [None]
  - Biliary dyskinesia [None]
